FAERS Safety Report 13572122 (Version 1)
Quarter: 2017Q2

REPORT INFORMATION
  Report Type: Spontaneous
  Country: RO (occurrence: RO)
  Receive Date: 20170523
  Receipt Date: 20170523
  Transmission Date: 20170830
  Serious: Yes (Hospitalization, Other)
  Sender: FDA-Public Use
  Company Number: PHHY2017RO072351

PATIENT
  Age: 30 Year
  Sex: Female

DRUGS (4)
  1. IMATINIB [Suspect]
     Active Substance: IMATINIB
     Dosage: 800 MG, QD
     Route: 065
     Dates: start: 201107
  2. SUNITINIB [Suspect]
     Active Substance: SUNITINIB
     Indication: PRODUCT USED FOR UNKNOWN INDICATION
     Route: 065
  3. IMATINIB [Suspect]
     Active Substance: IMATINIB
     Indication: GASTROINTESTINAL STROMAL TUMOUR
     Dosage: 400 MG, UNK
     Route: 065
     Dates: start: 201107
  4. IMATINIB [Suspect]
     Active Substance: IMATINIB
     Dosage: 400 MG, UNK
     Route: 065

REACTIONS (16)
  - Tachycardia [Unknown]
  - Haemoglobin decreased [Unknown]
  - Peritoneal haemorrhage [Unknown]
  - Hepatomegaly [Unknown]
  - Lacrimal disorder [Unknown]
  - Gastrointestinal stromal tumour [Unknown]
  - Alanine aminotransferase increased [Unknown]
  - Malignant neoplasm progression [Unknown]
  - Testicular neoplasm [Unknown]
  - Fatigue [Unknown]
  - Hypotension [Unknown]
  - Blood alkaline phosphatase increased [Unknown]
  - Abdominal pain [Unknown]
  - Hepatocellular injury [Unknown]
  - Aspartate aminotransferase increased [Unknown]
  - Abdominal neoplasm [Unknown]
